FAERS Safety Report 17095959 (Version 5)
Quarter: 2020Q1

REPORT INFORMATION
  Report Type: Spontaneous
  Country: US (occurrence: US)
  Receive Date: 20191202
  Receipt Date: 20200317
  Transmission Date: 20200409
  Serious: Yes (Hospitalization, Other)
  Sender: FDA-Public Use
  Company Number: US-GLAXOSMITHKLINE-US2019AMR207089

PATIENT
  Sex: Female

DRUGS (1)
  1. ADVAIR DISKUS [Suspect]
     Active Substance: FLUTICASONE PROPIONATE\SALMETEROL XINAFOATE
     Indication: ASTHMA
     Dosage: 1 PUFF(S), BID
     Route: 055
     Dates: start: 2000

REACTIONS (8)
  - Breast cancer [Unknown]
  - Cancer surgery [Unknown]
  - Muscular weakness [Unknown]
  - Breast conserving surgery [Unknown]
  - Gait disturbance [Unknown]
  - Osteoporosis [Unknown]
  - Dysstasia [Unknown]
  - Spinal operation [Unknown]

NARRATIVE: CASE EVENT DATE: 2018
